FAERS Safety Report 10347853 (Version 6)
Quarter: 2015Q1

REPORT INFORMATION
  Report Type: Report from Study
  Country: ES (occurrence: ES)
  Receive Date: 20140729
  Receipt Date: 20150316
  Transmission Date: 20150720
  Serious: Yes (Hospitalization, Disabling, Other)
  Sender: FDA-Public Use
  Company Number: ES-PFIZER INC-2014206231

PATIENT
  Age: 46 Year
  Sex: Male
  Weight: 71 kg

DRUGS (21)
  1. PREDNISONE. [Suspect]
     Active Substance: PREDNISONE
     Dosage: 7.5 MG, DAILY
     Route: 048
     Dates: start: 20050412, end: 20070114
  2. NAPROXEN. [Concomitant]
     Active Substance: NAPROXEN
     Indication: RHEUMATOID ARTHRITIS
     Dosage: UNK
  3. OMEPRAZOLE. [Concomitant]
     Active Substance: OMEPRAZOLE
     Indication: PROPHYLAXIS
     Dosage: UNK
  4. PREDNISONE. [Suspect]
     Active Substance: PREDNISONE
     Dosage: 5 MG, DAILY
     Route: 048
     Dates: start: 20000515, end: 20000912
  5. PREDNISONE. [Suspect]
     Active Substance: PREDNISONE
     Dosage: 15 MG, DAILY
     Route: 048
     Dates: start: 20030630, end: 20040316
  6. PREDNISONE. [Suspect]
     Active Substance: PREDNISONE
     Dosage: 10 MG, DAILY
     Route: 048
     Dates: start: 20040317, end: 20050411
  7. PREDNISONE. [Suspect]
     Active Substance: PREDNISONE
     Dosage: 15 MG, DAILY
     Route: 048
     Dates: start: 20090514, end: 20090906
  8. PREDNISONE. [Suspect]
     Active Substance: PREDNISONE
     Dosage: 7.5 MG DAILY
     Route: 048
     Dates: start: 19990308, end: 19991003
  9. PREDNISONE. [Suspect]
     Active Substance: PREDNISONE
     Dosage: 10 MG, DAILY
     Route: 048
     Dates: start: 20070115, end: 20090513
  10. PREDNISONE. [Suspect]
     Active Substance: PREDNISONE
     Dosage: 10 MG, DAILY
     Route: 048
     Dates: start: 20090907, end: 20091209
  11. FOLINIC ACID [Concomitant]
     Active Substance: LEUCOVORIN
     Indication: RHEUMATOID ARTHRITIS
     Dosage: UNK
  12. PREDNISONE. [Suspect]
     Active Substance: PREDNISONE
     Dosage: 10 MG DAILY
     Route: 048
     Dates: start: 19991004, end: 20000514
  13. PREDNISONE. [Suspect]
     Active Substance: PREDNISONE
     Dosage: 20 MG, DAILY
     Route: 048
     Dates: start: 20030217, end: 20030629
  14. PREDNISONE. [Suspect]
     Active Substance: PREDNISONE
     Dosage: 10 MG, DAILY
     Route: 048
     Dates: start: 20100211, end: 20140714
  15. TOFACITINIB CITRATE [Suspect]
     Active Substance: TOFACITINIB CITRATE
     Indication: RHEUMATOID ARTHRITIS
     Dosage: 10 MG, 2X/DAY
     Route: 048
     Dates: start: 20100506, end: 20140722
  16. PREDNISONE. [Suspect]
     Active Substance: PREDNISONE
     Indication: RHEUMATOID ARTHRITIS
     Dosage: 15 MG, DAILY
     Route: 048
     Dates: start: 19970829, end: 19971119
  17. PREDNISONE. [Suspect]
     Active Substance: PREDNISONE
     Dosage: 10 MG ONCE DAILY
     Route: 048
     Dates: start: 19971120, end: 19990307
  18. PREDNISONE. [Suspect]
     Active Substance: PREDNISONE
     Dosage: 3.75 MG, DAILY
     Route: 048
     Dates: start: 20000913, end: 20010225
  19. METHOTREXATE [Concomitant]
     Active Substance: METHOTREXATE
     Indication: RHEUMATOID ARTHRITIS
     Dosage: UNK
  20. PREDNISONE. [Suspect]
     Active Substance: PREDNISONE
     Dosage: 5 MG, DAILY
     Route: 048
     Dates: start: 20010226, end: 20030216
  21. PREDNISONE. [Suspect]
     Active Substance: PREDNISONE
     Dosage: 15 MG, DAILY
     Route: 048
     Dates: start: 20091210, end: 20100210

REACTIONS (1)
  - Arthritis bacterial [Recovered/Resolved with Sequelae]

NARRATIVE: CASE EVENT DATE: 20140715
